FAERS Safety Report 24927516 (Version 1)
Quarter: 2025Q1

REPORT INFORMATION
  Report Type: Spontaneous
  Country: BR (occurrence: BR)
  Receive Date: 20250205
  Receipt Date: 20250205
  Transmission Date: 20250408
  Serious: Yes (Other)
  Sender: Unknown Manufacturer
  Company Number: BR-AstraZeneca-CH-00790664A

PATIENT

DRUGS (1)
  1. METOPROLOL SUCCINATE [Suspect]
     Active Substance: METOPROLOL SUCCINATE
     Indication: Product used for unknown indication
     Dosage: 50 MILLIGRAM, QD, IN THE MORNING
     Route: 048

REACTIONS (8)
  - Fall [Recovered/Resolved]
  - Rib fracture [Unknown]
  - Clavicle fracture [Unknown]
  - Spinal fracture [Unknown]
  - Lower limb fracture [Unknown]
  - Craniofacial fracture [Unknown]
  - Syncope [Recovered/Resolved]
  - Wrong technique in product usage process [Unknown]

NARRATIVE: CASE EVENT DATE: 20250111
